FAERS Safety Report 5140766-9 (Version None)
Quarter: 2006Q4

REPORT INFORMATION
  Report Type: 
  Country: None (occurrence: None)
  Receive Date: 20061025
  Receipt Date: 20061017
  Transmission Date: 20070319
  Serious: Yes (Hospitalization)
  Sender: FDA-Public Use
  Company Number: 2006S1000250

PATIENT
  Age: 34 Year
  Sex: Female

DRUGS (2)
  1. SORIATANE [Suspect]
     Indication: PSORIASIS
     Dosage: PO
     Route: 048
     Dates: start: 20060718, end: 20060726
  2. RODOGYL (RHODOGIL) [Suspect]
     Indication: TOOTH ABSCESS
     Dosage: PO
     Route: 048
     Dates: start: 20060522, end: 20060727

REACTIONS (15)
  - ACUTE PULMONARY OEDEMA [None]
  - AUTOIMMUNE DISORDER [None]
  - CARDIAC VALVE DISEASE [None]
  - CELL DEATH [None]
  - CHOLESTASIS [None]
  - DERMATITIS EXFOLIATIVE [None]
  - EJECTION FRACTION DECREASED [None]
  - FLUID OVERLOAD [None]
  - INFLAMMATION [None]
  - LYMPHADENOPATHY [None]
  - MUCOUS MEMBRANE DISORDER [None]
  - MYOCARDIAL INFARCTION [None]
  - MYOCARDITIS [None]
  - PYREXIA [None]
  - VENTRICULAR HYPOKINESIA [None]
